FAERS Safety Report 6159286-8 (Version None)
Quarter: 2009Q2

REPORT INFORMATION
  Report Type: 
  Country: None (occurrence: None)
  Receive Date: 20090417
  Receipt Date: 20090409
  Transmission Date: 20091009
  Serious: Yes (Hospitalization)
  Sender: FDA-Public Use
  Company Number: PHHY2009FR13911

PATIENT
  Sex: Male

DRUGS (1)
  1. AREDIA [Suspect]
     Indication: COMPLEX REGIONAL PAIN SYNDROME
     Dosage: 1 DF, UNK
     Dates: start: 20090209, end: 20090211

REACTIONS (9)
  - DIARRHOEA [None]
  - FLUSHING [None]
  - HYPERTHERMIA [None]
  - HYPOTENSION [None]
  - MUSCULOSKELETAL STIFFNESS [None]
  - NAUSEA [None]
  - SYNCOPE [None]
  - TACHYCARDIA [None]
  - THROMBOCYTOPENIA [None]
